FAERS Safety Report 4401778-3 (Version None)
Quarter: 2004Q3

REPORT INFORMATION
  Report Type: 
  Country: None (occurrence: None)
  Receive Date: 20040719
  Receipt Date: 20040708
  Transmission Date: 20050211
  Serious: Yes (Life-Threatening)
  Sender: FDA-Public Use
  Company Number: FR-BRISTOL-MYERS SQUIBB COMPANY-12636007

PATIENT
  Age: 58 Year
  Sex: Female

DRUGS (1)
  1. KENACORT [Suspect]
     Route: 014
     Dates: start: 19980101

REACTIONS (1)
  - ANGIONEUROTIC OEDEMA [None]
